FAERS Safety Report 5260461-5 (Version None)
Quarter: 2007Q1

REPORT INFORMATION
  Report Type: 
  Country: None (occurrence: None)
  Receive Date: 20061208
  Receipt Date: 20050308
  Transmission Date: 20070707
  Serious: Yes (Hospitalization)
  Sender: FDA-Public Use
  Company Number: 2005UW03693

PATIENT
  Age: 77 Year
  Weight: 63.502 kg

DRUGS (5)
  1. NEXIUM [Suspect]
     Dosage: 40 MG DAILY
  2. CARDIZEM [Concomitant]
  3. ACTONEL [Concomitant]
  4. OSCAL [Concomitant]
  5. ANTI-HYERTENSIVE [Concomitant]

REACTIONS (5)
  - BACK INJURY [None]
  - DYSPNOEA [None]
  - HYPERTENSION [None]
  - SKELETAL INJURY [None]
  - WEIGHT INCREASED [None]
